FAERS Safety Report 17376154 (Version 1)
Quarter: 2020Q1

REPORT INFORMATION
  Report Type: Spontaneous
  Country: US (occurrence: US)
  Receive Date: 20200205
  Receipt Date: 20200205
  Transmission Date: 20200409
  Serious: Yes (Other)
  Sender: FDA-Public Use
  Company Number: None

PATIENT
  Age: 13 Year
  Sex: Male
  Weight: 55.35 kg

DRUGS (1)
  1. DEXMETHYLPHENIDATE XR [Suspect]
     Active Substance: DEXMETHYLPHENIDATE HYDROCHLORIDE
     Indication: ATTENTION DEFICIT/HYPERACTIVITY DISORDER
     Route: 053
     Dates: start: 20200129

REACTIONS (3)
  - Therapeutic product effect incomplete [None]
  - Product substitution issue [None]
  - Aggression [None]

NARRATIVE: CASE EVENT DATE: 20200204
